FAERS Safety Report 17272729 (Version 7)
Quarter: 2023Q2

REPORT INFORMATION
  Report Type: Spontaneous
  Country: US (occurrence: US)
  Receive Date: 20200115
  Receipt Date: 20230622
  Transmission Date: 20230721
  Serious: Yes (Death)
  Sender: FDA-Public Use
  Company Number: US-PFIZER INC-2020018526

PATIENT
  Age: 85 Year
  Sex: Female
  Weight: 49.9 kg

DRUGS (2)
  1. AROMASIN [Suspect]
     Active Substance: EXEMESTANE
     Indication: Breast cancer female
     Dosage: 25 MG, DAILY IN MORNING
     Route: 048
     Dates: start: 20191119
  2. AROMASIN [Suspect]
     Active Substance: EXEMESTANE
     Indication: Breast mass

REACTIONS (4)
  - Death [Fatal]
  - Amusia [Not Recovered/Not Resolved]
  - Hyperaesthesia teeth [Recovered/Resolved]
  - Toothache [Recovered/Resolved]

NARRATIVE: CASE EVENT DATE: 20191231
